FAERS Safety Report 14405091 (Version 1)
Quarter: 2018Q1

REPORT INFORMATION
  Report Type: Spontaneous
  Country: US (occurrence: US)
  Receive Date: 20180118
  Receipt Date: 20180118
  Transmission Date: 20180509
  Serious: No
  Sender: FDA-Public Use
  Company Number: US-JNJFOC-20171113155

PATIENT
  Age: 53 Year
  Sex: Male
  Weight: 154.22 kg

DRUGS (1)
  1. HALDOL [Suspect]
     Active Substance: HALOPERIDOL
     Indication: PRODUCT USED FOR UNKNOWN INDICATION
     Route: 058
     Dates: start: 20171107, end: 20171107

REACTIONS (2)
  - Incorrect route of drug administration [Unknown]
  - Off label use [Unknown]
